FAERS Safety Report 4749864-2 (Version None)
Quarter: 2005Q3

REPORT INFORMATION
  Report Type: 
  Country: None (occurrence: None)
  Receive Date: 20050818
  Receipt Date: 20050810
  Transmission Date: 20060218
  Serious: Yes (Hospitalization, Other)
  Sender: FDA-Public Use
  Company Number: 2005-07-0149

PATIENT
  Age: 61 Year
  Sex: Male
  Weight: 69.8539 kg

DRUGS (8)
  1. PEG-INTRON [Suspect]
     Indication: HEPATITIS C
     Dosage: SEE IMAGE
     Route: 058
     Dates: start: 20050301, end: 20050515
  2. PEG-INTRON [Suspect]
     Indication: HEPATITIS C
     Dosage: SEE IMAGE
     Route: 058
     Dates: start: 20050101
  3. PEG-INTRON [Suspect]
     Indication: HEPATITIS C
     Dosage: SUBCUTANEOUS
     Route: 058
     Dates: start: 20041206, end: 20050301
  4. RIBAVIRIN [Suspect]
     Indication: HEPATITIS C
     Dosage: 1000 MG QD ORAL
     Route: 048
     Dates: start: 20041206, end: 20050520
  5. FIORINAL TABLETS [Concomitant]
  6. AMBIEN [Concomitant]
  7. MARINOL TABLETS [Concomitant]
  8. SOMA [Concomitant]

REACTIONS (30)
  - ABASIA [None]
  - AMNESIA [None]
  - ANAEMIA [None]
  - ASTHENIA [None]
  - BLISTER [None]
  - BONE MARROW DEPRESSION [None]
  - BURGLARY VICTIM [None]
  - CELLULITIS [None]
  - COMA [None]
  - DEPRESSED MOOD [None]
  - EXCORIATION [None]
  - FALL [None]
  - GAIT DISTURBANCE [None]
  - HAEMOGLOBIN DECREASED [None]
  - HYPOKALAEMIA [None]
  - HYPONATRAEMIA [None]
  - HYPOVOLAEMIA [None]
  - INCORRECT DOSE ADMINISTERED [None]
  - LOSS OF CONSCIOUSNESS [None]
  - MENTAL IMPAIRMENT [None]
  - NEUROLOGICAL SYMPTOM [None]
  - OEDEMA PERIPHERAL [None]
  - OXYGEN CONSUMPTION DECREASED [None]
  - PAIN IN EXTREMITY [None]
  - PERSONALITY CHANGE [None]
  - PHARMACEUTICAL PRODUCT COMPLAINT [None]
  - RED BLOOD CELL COUNT DECREASED [None]
  - SKIN EXFOLIATION [None]
  - SKIN LACERATION [None]
  - SKIN WRINKLING [None]
